FAERS Safety Report 17373114 (Version 1)
Quarter: 2020Q1

REPORT INFORMATION
  Report Type: Spontaneous
  Country: SE (occurrence: SE)
  Receive Date: 20200205
  Receipt Date: 20200205
  Transmission Date: 20200409
  Serious: Yes (Other)
  Sender: FDA-Public Use
  Company Number: NVSC2020SE023551

PATIENT
  Age: 35 Year
  Sex: Female

DRUGS (1)
  1. PIPERACILLIN/TAZOBACTAM ^SANDOZ^ [Suspect]
     Active Substance: PIPERACILLIN SODIUM\TAZOBACTAM SODIUM
     Indication: PNEUMONIA
     Dosage: 3 UNK, QD (4 G X 3)
     Route: 065
     Dates: end: 20191023

REACTIONS (1)
  - Angioedema [Recovering/Resolving]

NARRATIVE: CASE EVENT DATE: 20191023
